FAERS Safety Report 10300191 (Version 3)
Quarter: 2015Q1

REPORT INFORMATION
  Report Type: Report from Study
  Country: BR (occurrence: BR)
  Receive Date: 20140711
  Receipt Date: 20150122
  Transmission Date: 20150720
  Serious: Yes (Other)
  Sender: FDA-Public Use
  Company Number: BR-ABBVIE-14P-020-1256912-00

PATIENT
  Age: 61 Year
  Sex: Male
  Weight: 90 kg

DRUGS (5)
  1. NERISONA [Concomitant]
     Active Substance: DIFLUCORTOLONE VALERATE
     Indication: PSORIASIS
  2. DRENISON OCLUSIVO [Concomitant]
     Indication: PSORIASIS
  3. PROTOPIC [Concomitant]
     Active Substance: TACROLIMUS
     Indication: PSORIASIS
  4. HUMIRA [Suspect]
     Active Substance: ADALIMUMAB
     Indication: PSORIATIC ARTHROPATHY
     Route: 058
     Dates: start: 20120101, end: 20141211
  5. HUMIRA [Suspect]
     Active Substance: ADALIMUMAB
     Indication: PSORIASIS
     Route: 058
     Dates: start: 2014

REACTIONS (15)
  - Pruritus [Not Recovered/Not Resolved]
  - Infection [Recovering/Resolving]
  - Oral candidiasis [Recovered/Resolved]
  - Asthenia [Recovering/Resolving]
  - Anogenital warts [Recovered/Resolved]
  - Blood creatinine increased [Not Recovered/Not Resolved]
  - Oesophageal disorder [Recovered/Resolved]
  - Hiatus hernia [Recovered/Resolved]
  - Papilloma viral infection [Recovered/Resolved]
  - Immunodeficiency [Recovered/Resolved]
  - Ear pain [Recovering/Resolving]
  - Drug ineffective [Unknown]
  - Furuncle [Recovering/Resolving]
  - Wound infection [Recovering/Resolving]
  - Genital herpes [Recovering/Resolving]

NARRATIVE: CASE EVENT DATE: 201407
